FAERS Safety Report 19379727 (Version 2)
Quarter: 2021Q3

REPORT INFORMATION
  Report Type: Report from Study
  Country: None (occurrence: DE)
  Receive Date: 20210607
  Receipt Date: 20210709
  Transmission Date: 20211014
  Serious: Yes (Other)
  Sender: FDA-Public Use
  Company Number: DE-ABBVIE-21K-062-3936116-00

PATIENT
  Sex: Male
  Weight: 85 kg

DRUGS (18)
  1. DOMPERIDON STADA [Concomitant]
     Indication: PRODUCT USED FOR UNKNOWN INDICATION
  2. TORASEMID HEUMANN [Concomitant]
     Indication: PRODUCT USED FOR UNKNOWN INDICATION
  3. L?THYROXIN ARISTO [Concomitant]
     Active Substance: LEVOTHYROXINE SODIUM
     Indication: PRODUCT USED FOR UNKNOWN INDICATION
  4. NACOM [Concomitant]
     Active Substance: CARBIDOPA\LEVODOPA
     Indication: PRODUCT USED FOR UNKNOWN INDICATION
     Dosage: 200/50MG?NACOM RETARD
  5. KALINOR RETARD P [Concomitant]
     Active Substance: POTASSIUM CHLORIDE
     Indication: PRODUCT USED FOR UNKNOWN INDICATION
     Dosage: KALINOR RETARD
  6. DUODOPA [Suspect]
     Active Substance: CARBIDOPA\LEVODOPA
     Indication: PARKINSON^S DISEASE
     Dosage: MD 3ML, CRD 2.2ML/H, ED 1.5ML
     Route: 050
     Dates: start: 20180302, end: 2021
  7. TOREM [Concomitant]
     Active Substance: TORSEMIDE
     Indication: PRODUCT USED FOR UNKNOWN INDICATION
  8. SPIRONOLACTON [Concomitant]
     Active Substance: SPIRONOLACTONE
     Indication: PRODUCT USED FOR UNKNOWN INDICATION
  9. PANTOPRAZOL AUROBINDO [Concomitant]
     Active Substance: PANTOPRAZOLE SODIUM
     Indication: PRODUCT USED FOR UNKNOWN INDICATION
  10. LACTULOSE. [Concomitant]
     Active Substance: LACTULOSE
     Indication: PRODUCT USED FOR UNKNOWN INDICATION
     Dosage: AS REQUIRED
  11. GINGIUM [Concomitant]
     Active Substance: GINKGO
     Indication: PRODUCT USED FOR UNKNOWN INDICATION
  12. ASS 1 A PHARMA [Concomitant]
     Active Substance: ASPIRIN
     Indication: ANTICOAGULANT THERAPY
     Dates: end: 20210621
  13. ELONTRIL [Concomitant]
     Active Substance: BUPROPION HYDROCHLORIDE
     Indication: PRODUCT USED FOR UNKNOWN INDICATION
  14. CALCIUM BT [Concomitant]
     Indication: PRODUCT USED FOR UNKNOWN INDICATION
     Dosage: CALCIUM BT
  15. DUODOPA [Suspect]
     Active Substance: CARBIDOPA\LEVODOPA
     Dosage: MD 4 ML/H; (16ML/DAY); CRD 2.2 ML/H
     Route: 050
     Dates: start: 2021
  16. TAMSULOSIN HEUMANN [Concomitant]
     Active Substance: TAMSULOSIN
     Indication: PRODUCT USED FOR UNKNOWN INDICATION
  17. TILIDIN [Concomitant]
     Active Substance: NALOXONE HYDROCHLORIDE\TILIDINE HYDROCHLORIDE
     Indication: PRODUCT USED FOR UNKNOWN INDICATION
  18. ARGININE;FOLIC ACID [Concomitant]
     Indication: PRODUCT USED FOR UNKNOWN INDICATION
     Dosage: ARGININ+B1+B6+B12+FOLIC ACID

REACTIONS (1)
  - Skin cancer [Not Recovered/Not Resolved]
